FAERS Safety Report 20925213 (Version 1)
Quarter: 2022Q2

REPORT INFORMATION
  Report Type: Spontaneous
  Country: IT (occurrence: None)
  Receive Date: 20220607
  Receipt Date: 20220607
  Transmission Date: 20220721
  Serious: Yes (Hospitalization)
  Sender: FDA-Public Use
  Company Number: 2022A205629

PATIENT
  Age: 14 Year
  Sex: Male
  Weight: 80 kg

DRUGS (3)
  1. EVUSHELD [Suspect]
     Active Substance: CILGAVIMAB\TIXAGEVIMAB
     Indication: Immunisation
     Dosage: 300.0MG ONCE/SINGLE ADMINISTRATION
     Route: 030
     Dates: start: 20220419, end: 20220419
  2. COMIRNATY [Suspect]
     Active Substance: TOZINAMERAN
     Indication: Immunisation
     Dosage: 300 MG1.0DF ONCE/SINGLE ADMINISTRATION
     Route: 030
     Dates: start: 20211213, end: 20211213
  3. HUMAN IMMUNOGLOBULIN G [Concomitant]
     Active Substance: HUMAN IMMUNOGLOBULIN G
     Dosage: 25.0G UNKNOWN
     Route: 065
     Dates: start: 20220406, end: 20220406

REACTIONS (1)
  - COVID-19 [Not Recovered/Not Resolved]

NARRATIVE: CASE EVENT DATE: 20220428
